FAERS Safety Report 5104618-2 (Version None)
Quarter: 2006Q3

REPORT INFORMATION
  Report Type: 
  Country: None (occurrence: None)
  Receive Date: 20060914
  Receipt Date: 20060804
  Transmission Date: 20061208
  Serious: No
  Sender: FDA-Public Use
  Company Number: US-BRISTOL-MYERS SQUIBB COMPANY-13465752

PATIENT
  Age: 21 Year
  Sex: Female
  Weight: 68 kg

DRUGS (2)
  1. BUSPAR [Suspect]
     Indication: OBSESSIVE-COMPULSIVE PERSONALITY DISORDER
     Dosage: BUSPAR 10 MG BID BEGAN 25-MAY-2006 AND INCREASED TO 15 MG BID ON 29-JUNE-2006.
     Route: 048
     Dates: start: 20060525
  2. LAMICTAL [Concomitant]

REACTIONS (2)
  - DIZZINESS [None]
  - FATIGUE [None]
